FAERS Safety Report 17851811 (Version 1)
Quarter: 2020Q2

REPORT INFORMATION
  Report Type: Spontaneous
  Country: CN (occurrence: CN)
  Receive Date: 20200602
  Receipt Date: 20200602
  Transmission Date: 20200714
  Serious: Yes (Life-Threatening, Hospitalization, Other)
  Sender: FDA-Public Use
  Company Number: CN-SA-2020SA139666

PATIENT

DRUGS (17)
  1. ELOXATIN [Suspect]
     Active Substance: OXALIPLATIN
     Indication: HYPERTENSION
  2. GEMCITABINE HYDROCHLORIDE. [Suspect]
     Active Substance: GEMCITABINE HYDROCHLORIDE
     Indication: SPINAL OSTEOARTHRITIS
  3. GEMCITABINE HYDROCHLORIDE. [Suspect]
     Active Substance: GEMCITABINE HYDROCHLORIDE
     Indication: HYPERTENSION
  4. SODIUM CHLORIDE. [Concomitant]
     Active Substance: SODIUM CHLORIDE
     Indication: HYPERTENSION
  5. SODIUM CHLORIDE. [Concomitant]
     Active Substance: SODIUM CHLORIDE
     Indication: DIFFUSE LARGE B-CELL LYMPHOMA
     Dosage: 500 ML, QD
     Dates: start: 20200516, end: 20200516
  6. SODIUM CHLORIDE. [Concomitant]
     Active Substance: SODIUM CHLORIDE
     Indication: SPINAL OSTEOARTHRITIS
  7. SODIUM CHLORIDE. [Concomitant]
     Active Substance: SODIUM CHLORIDE
     Indication: DIABETES MELLITUS
  8. GLUCOSE [Concomitant]
     Active Substance: DEXTROSE
     Indication: HYPERTENSION
  9. ELOXATIN [Suspect]
     Active Substance: OXALIPLATIN
     Indication: DIFFUSE LARGE B-CELL LYMPHOMA
     Dosage: 190 MG, QD
     Dates: start: 20200515, end: 20200516
  10. GEMCITABINE HYDROCHLORIDE. [Suspect]
     Active Substance: GEMCITABINE HYDROCHLORIDE
     Indication: DIFFUSE LARGE B-CELL LYMPHOMA
     Dosage: 1.9 G, QD
     Dates: start: 20200515, end: 20200516
  11. GEMCITABINE HYDROCHLORIDE. [Suspect]
     Active Substance: GEMCITABINE HYDROCHLORIDE
     Indication: DIABETES MELLITUS
  12. OBINUTUZUMAB. [Suspect]
     Active Substance: OBINUTUZUMAB
     Indication: DIFFUSE LARGE B-CELL LYMPHOMA
     Dosage: 1000 MG, QD
     Route: 041
     Dates: start: 20200515, end: 20200515
  13. GLUCOSE [Concomitant]
     Active Substance: DEXTROSE
     Indication: SPINAL OSTEOARTHRITIS
  14. GLUCOSE [Concomitant]
     Active Substance: DEXTROSE
     Indication: DIABETES MELLITUS
  15. ELOXATIN [Suspect]
     Active Substance: OXALIPLATIN
     Indication: SPINAL OSTEOARTHRITIS
  16. ELOXATIN [Suspect]
     Active Substance: OXALIPLATIN
     Indication: DIABETES MELLITUS
  17. GLUCOSE [Concomitant]
     Active Substance: DEXTROSE
     Indication: DIFFUSE LARGE B-CELL LYMPHOMA
     Dosage: 250 ML, QD
     Dates: start: 20200516, end: 20200516

REACTIONS (3)
  - Platelet count decreased [Recovering/Resolving]
  - Bone marrow failure [Recovering/Resolving]
  - Haemorrhage subcutaneous [Recovering/Resolving]

NARRATIVE: CASE EVENT DATE: 20200518
